FAERS Safety Report 8161993-2 (Version None)
Quarter: 2012Q1

REPORT INFORMATION
  Report Type: 
  Country: None (occurrence: None)
  Receive Date: 20120224
  Receipt Date: 20111118
  Transmission Date: 20120608
  Serious: No
  Sender: FDA-Public Use
  Company Number: US-BRISTOL-MYERS SQUIBB COMPANY-16238867

PATIENT
  Age: 74 Year
  Sex: Male
  Weight: 122 kg

DRUGS (16)
  1. SINGULAIR [Concomitant]
  2. MULTAQ [Concomitant]
  3. SPIRONOLACTONE [Concomitant]
  4. NEXIUM [Concomitant]
  5. LEVOTHYROXINE SODIUM [Concomitant]
  6. ZYRTEC [Concomitant]
  7. LOSARTAN POTASSIUM [Concomitant]
  8. TOPROL-XL [Concomitant]
  9. OXYGEN [Concomitant]
  10. ACTOS [Concomitant]
  11. NOVOLOG [Concomitant]
  12. GLUCOPHAGE [Suspect]
  13. FUROSEMIDE [Concomitant]
  14. SPIRIVA [Concomitant]
  15. CELEBREX [Concomitant]
  16. ALBUTEROL [Concomitant]

REACTIONS (1)
  - ADVERSE EVENT [None]
